FAERS Safety Report 9155000 (Version 1)
Quarter: 2013Q1

REPORT INFORMATION
  Report Type: Spontaneous
  Country: US (occurrence: US)
  Receive Date: 20130311
  Receipt Date: 20130311
  Transmission Date: 20140127
  Serious: Yes (Hospitalization)
  Sender: FDA-Public Use
  Company Number: US-BAYER-2013-028321

PATIENT
  Age: 46 Year
  Sex: Female
  Weight: 66.21 kg

DRUGS (6)
  1. YASMIN [Suspect]
     Indication: DYSPHORIA
  2. YASMIN [Suspect]
     Indication: MENSTRUATION IRREGULAR
  3. BABY ASPIRIN [Concomitant]
  4. AMBIEN [Concomitant]
     Dosage: UNK
     Dates: start: 20040108
  5. CLONAZEPAM [Concomitant]
     Dosage: UNK
     Dates: start: 20040608
  6. HYDROCODONE W/APAP [Concomitant]
     Dosage: UNK
     Dates: start: 20040608

REACTIONS (1)
  - Deep vein thrombosis [None]
